FAERS Safety Report 8793629 (Version 1)
Quarter: 2012Q4

REPORT INFORMATION
  Report Type: 
  Country: HU (occurrence: HU)
  Receive Date: 20120917
  Receipt Date: 20120917
  Transmission Date: 20130627
  Serious: Yes (Hospitalization)
  Sender: FDA-Public Use
  Company Number: HU-GLAXOSMITHKLINE-B0830768A

PATIENT
  Sex: Male

DRUGS (1)
  1. SERETIDE [Suspect]
     Indication: PRODUCT USED FOR UNKNOWN INDICATION
     Route: 065
     Dates: start: 201201, end: 201206

REACTIONS (1)
  - Haemoptysis [Recovered/Resolved]
